FAERS Safety Report 20345299 (Version 1)
Quarter: 2022Q1

REPORT INFORMATION
  Report Type: Spontaneous
  Country: ES (occurrence: ES)
  Receive Date: 20220118
  Receipt Date: 20220118
  Transmission Date: 20220423
  Serious: Yes (Other)
  Sender: FDA-Public Use
  Company Number: ES-HQ SPECIALTY-ES-2022INT000002

PATIENT

DRUGS (3)
  1. MEROPENEM [Suspect]
     Active Substance: MEROPENEM
     Indication: Cellulitis
     Dosage: UNK
     Route: 065
  2. LINEZOLID [Concomitant]
     Active Substance: LINEZOLID
     Indication: Cellulitis
     Dosage: UNK
     Route: 065
  3. DENOSUMAB [Concomitant]
     Active Substance: DENOSUMAB
     Indication: Bone giant cell tumour malignant
     Dosage: UNK
     Route: 065

REACTIONS (1)
  - Symmetrical drug-related intertriginous and flexural exanthema [Recovered/Resolved]
